FAERS Safety Report 10149171 (Version 2)
Quarter: 2014Q2

REPORT INFORMATION
  Report Type: Spontaneous
  Country: IN (occurrence: IN)
  Receive Date: 20140502
  Receipt Date: 20140502
  Transmission Date: 20141212
  Serious: Yes (Disabling)
  Sender: FDA-Public Use
  Company Number: IN-RANBAXY-2014R1-80894

PATIENT
  Age: 35 Year
  Sex: Male

DRUGS (3)
  1. SERTRALINE [Suspect]
     Indication: MAJOR DEPRESSION
     Dosage: 50 MG, QD
     Route: 048
     Dates: start: 20130522
  2. LITHIUM [Concomitant]
     Indication: PRODUCT USED FOR UNKNOWN INDICATION
     Dosage: UNK
     Route: 065
  3. LAMOTRIGINE [Concomitant]
     Indication: PRODUCT USED FOR UNKNOWN INDICATION
     Dosage: UNK
     Route: 065

REACTIONS (1)
  - Sedation [Unknown]
